FAERS Safety Report 25439956 (Version 1)
Quarter: 2025Q2

REPORT INFORMATION
  Report Type: Spontaneous
  Country: FR (occurrence: FR)
  Receive Date: 20250616
  Receipt Date: 20250616
  Transmission Date: 20250717
  Serious: Yes (Other)
  Sender: CHATTEM
  Company Number: FR-OPELLA-2025OHG017220

PATIENT
  Age: 57 Year
  Sex: Male

DRUGS (8)
  1. NASACORT [Suspect]
     Active Substance: TRIAMCINOLONE ACETONIDE
     Indication: Nasal obstruction
     Route: 045
  2. HUMEX(CARBOCYSTEINE) [Suspect]
     Active Substance: CARBOCYSTEINE
     Indication: Nasal obstruction
     Route: 045
  3. DYMISTA [Suspect]
     Active Substance: AZELASTINE HYDROCHLORIDE\FLUTICASONE PROPIONATE
     Indication: Nasal obstruction
     Route: 045
  4. PREDNISOLONE [Suspect]
     Active Substance: PREDNISOLONE
     Indication: Nasal obstruction
     Dosage: PREDNISOLONE (SOLUPRED?) 40 MILLIGRAMS 3 DAYS/(SOLUPRED 20? - 2 CP/D) TAKEN FOR 3 DAYS
  5. BECLOMETHASONE DIPROPIONATE [Suspect]
     Active Substance: BECLOMETHASONE DIPROPIONATE
     Indication: Nasal obstruction
     Route: 045
  6. Clamoxyl [Concomitant]
     Indication: Nasal obstruction
     Route: 048
  7. EBASTINE [Concomitant]
     Active Substance: EBASTINE
     Indication: Nasal obstruction
     Route: 048
  8. ACTIFED (PSEUDOEPHEDRINE HYDROCHLORIDE\TRIPROLIDINE HYDROCHLORIDE) [Concomitant]
     Active Substance: PSEUDOEPHEDRINE HYDROCHLORIDE\TRIPROLIDINE HYDROCHLORIDE
     Indication: Nasal obstruction
     Route: 045

REACTIONS (5)
  - Cushing^s syndrome [Recovered/Resolved]
  - Tachycardia [Recovered/Resolved]
  - Hyperglycaemia [Recovered/Resolved]
  - Hyponatraemia [Recovered/Resolved]
  - Chest pain [Unknown]
